FAERS Safety Report 7897376-X (Version None)
Quarter: 2011Q4

REPORT INFORMATION
  Report Type: 
  Country: None (occurrence: None)
  Receive Date: 20111103
  Receipt Date: 20111019
  Transmission Date: 20120403
  Serious: Yes (Hospitalization)
  Sender: FDA-Public Use
  Company Number: USA/USA/11/0021733

PATIENT
  Age: 40 Year
  Sex: Male

DRUGS (1)
  1. NAPROXEN [Suspect]
     Indication: MIGRAINE
     Dosage: 440 MG, 3 IN 1 D, ORAL
     Route: 048

REACTIONS (8)
  - CACHEXIA [None]
  - WEIGHT DECREASED [None]
  - DIARRHOEA [None]
  - GASTRIC ULCER [None]
  - GASTROINTESTINAL FISTULA [None]
  - REFUSAL OF TREATMENT BY PATIENT [None]
  - BREATH ODOUR [None]
  - GASTRITIS EROSIVE [None]
